FAERS Safety Report 4320633-0 (Version None)
Quarter: 2004Q1

REPORT INFORMATION
  Report Type: 
  Country: None (occurrence: None)
  Receive Date: 20040319
  Receipt Date: 20040319
  Transmission Date: 20041129
  Serious: Yes (Hospitalization)
  Sender: FDA-Public Use
  Company Number: None

PATIENT
  Age: 58 Year
  Sex: Female
  Weight: 103.4 kg

DRUGS (11)
  1. CYCLOPHOSPHAMIDE [Suspect]
     Indication: CHRONIC LEUKAEMIA
     Dosage: 1750 MG/ML IV
     Route: 042
     Dates: start: 20040122
  2. DOXORUBICIN HCL [Suspect]
     Dosage: SEE IMAGE
  3. PREDNISONE [Suspect]
     Dosage: 100 MG IV
     Route: 042
  4. VINCRISTINE [Suspect]
     Dosage: 2 MG IV
     Route: 042
  5. ABT-510 -400 MG [Suspect]
     Dosage: 100 MG=230 DAY SQ
     Route: 058
     Dates: start: 20040120
  6. MULTVITAMIN [Concomitant]
  7. VERAPAMIL [Concomitant]
  8. ZOLOFT [Concomitant]
  9. CUTROCAL [Concomitant]
  10. OXYBUTUMIN [Concomitant]
  11. PREMPRO [Concomitant]

REACTIONS (3)
  - DISEASE PROGRESSION [None]
  - PYREXIA [None]
  - SWELLING FACE [None]
